FAERS Safety Report 8933746 (Version 3)
Quarter: 2012Q4

REPORT INFORMATION
  Report Type: 
  Country: DK (occurrence: DK)
  Receive Date: 20121129
  Receipt Date: 20121218
  Transmission Date: 20130627
  Serious: Yes (Hospitalization)
  Sender: FDA-Public Use
  Company Number: DK-ROCHE-1159937

PATIENT
  Age: 55 Year
  Sex: Female
  Weight: 98 kg

DRUGS (10)
  1. AVASTIN [Suspect]
     Indication: FALLOPIAN TUBE CANCER STAGE I
     Route: 042
     Dates: start: 20121107, end: 20121109
  2. TAXOL [Suspect]
     Indication: FALLOPIAN TUBE CANCER STAGE I
     Route: 042
     Dates: start: 20120924, end: 20121109
  3. CARBOPLATIN [Suspect]
     Indication: FALLOPIAN TUBE CANCER STAGE I
     Route: 042
     Dates: start: 20120924, end: 20121109
  4. EMPERAL [Concomitant]
     Indication: NAUSEA
  5. TEMESTA [Concomitant]
     Indication: ANXIETY
     Route: 065
     Dates: start: 20120924
  6. METFORMIN [Concomitant]
     Indication: TYPE 2 DIABETES MELLITUS
     Route: 065
     Dates: start: 20100101
  7. ONDANSETRON [Concomitant]
     Indication: NAUSEA
     Route: 065
     Dates: start: 20120924
  8. SIMVASTATIN [Concomitant]
     Indication: HYPERCHOLESTEROLAEMIA
     Route: 065
     Dates: start: 20100101
  9. PINEX [Concomitant]
     Indication: PAIN
     Route: 065
     Dates: start: 20120924
  10. MIRENA [Concomitant]
     Indication: ENDOMETRIAL CANCER

REACTIONS (4)
  - Cough [Unknown]
  - Wound dehiscence [Not Recovered/Not Resolved]
  - Abdominal hernia [Not Recovered/Not Resolved]
  - Wound dehiscence [Recovered/Resolved]
